FAERS Safety Report 17840005 (Version 1)
Quarter: 2020Q2

REPORT INFORMATION
  Report Type: Spontaneous
  Country: US (occurrence: US)
  Receive Date: 20200529
  Receipt Date: 20200529
  Transmission Date: 20200714
  Serious: No
  Sender: FDA-Public Use
  Company Number: None

PATIENT
  Age: 72 Year
  Sex: Male
  Weight: 74.25 kg

DRUGS (8)
  1. GLIPIZIDE. [Concomitant]
     Active Substance: GLIPIZIDE
  2. FISH OIL [Concomitant]
     Active Substance: FISH OIL
  3. ASPIRIN (81 MG) [Concomitant]
  4. LEVIMIR FLEX TOUCH [Concomitant]
  5. LUTEIN [Concomitant]
     Active Substance: LUTEIN
  6. COLEVESELAM HYDROCHLORIDE FOR ORAL SUSPENSION 3.75 G PACKET [Suspect]
     Active Substance: COLESEVELAM HYDROCHLORIDE
     Indication: BLOOD CHOLESTEROL
     Dosage: ?          QUANTITY:1 PACKET;?
     Route: 048
  7. JANUVIA [Concomitant]
     Active Substance: SITAGLIPTIN PHOSPHATE
  8. METFORMIN [Concomitant]
     Active Substance: METFORMIN HYDROCHLORIDE

REACTIONS (4)
  - Product physical issue [None]
  - Product substitution issue [None]
  - Product solubility abnormal [None]
  - Cough [None]

NARRATIVE: CASE EVENT DATE: 20191230
